FAERS Safety Report 5268369-6 (Version None)
Quarter: 2007Q1

REPORT INFORMATION
  Report Type: 
  Country: None (occurrence: None)
  Receive Date: 20070313
  Receipt Date: 20070302
  Transmission Date: 20070707
  Serious: Yes (Other)
  Sender: FDA-Public Use
  Company Number: 430018K07USA

PATIENT
  Age: 38 Year
  Sex: Male
  Weight: 97.5234 kg

DRUGS (5)
  1. NOVANTRONE [Suspect]
     Indication: MULTIPLE SCLEROSIS
     Dosage: NOT REPORTED, 1 IN 3 MONTHS, INTRAVENOUS (NOT OTHERWISE SPECIFIED)
     Route: 042
     Dates: start: 20060803
  2. AMANTADINE (AMANTADINE /00055901/) [Concomitant]
  3. BACLOFEN [Concomitant]
  4. PROVIGIL [Concomitant]
  5. UNSPECIFIED MEDICATION (ALL OTHER THERAPEUTIC PRODUCTS) [Concomitant]

REACTIONS (1)
  - EJECTION FRACTION DECREASED [None]
